FAERS Safety Report 23771669 (Version 4)
Quarter: 2025Q1

REPORT INFORMATION
  Report Type: Report from Study
  Country: EC (occurrence: EC)
  Receive Date: 20240423
  Receipt Date: 20250103
  Transmission Date: 20250409
  Serious: Yes (Other)
  Sender: NOVARTIS
  Company Number: EC-002147023-NVSC2024EC083966

PATIENT
  Age: 62 Year
  Sex: Female

DRUGS (1)
  1. KISQALI [Suspect]
     Active Substance: RIBOCICLIB
     Indication: Breast cancer metastatic
     Dosage: 600 MG, QD
     Route: 048
     Dates: start: 20231102

REACTIONS (11)
  - Blindness [Not Recovered/Not Resolved]
  - Alopecia [Not Recovered/Not Resolved]
  - Food allergy [Not Recovered/Not Resolved]
  - Dry skin [Recovering/Resolving]
  - Decreased immune responsiveness [Not Recovered/Not Resolved]
  - Asthenia [Recovering/Resolving]
  - Discouragement [Recovering/Resolving]
  - Feeling cold [Recovering/Resolving]
  - Pallor [Recovering/Resolving]
  - Hypoaesthesia [Recovering/Resolving]
  - Dehydration [Recovered/Resolved]

NARRATIVE: CASE EVENT DATE: 20240101
